FAERS Safety Report 17865550 (Version 2)
Quarter: 2020Q2

REPORT INFORMATION
  Report Type: Spontaneous
  Country: BR (occurrence: BR)
  Receive Date: 20200605
  Receipt Date: 20200610
  Transmission Date: 20200714
  Serious: Yes (Other)
  Sender: FDA-Public Use
  Company Number: BR-PFIZER INC-2020218356

PATIENT
  Age: 77 Year
  Sex: Male
  Weight: 88 kg

DRUGS (6)
  1. ZITROMAX [Interacting]
     Active Substance: AZITHROMYCIN
     Indication: COVID-19
  2. AMIODARONE [Interacting]
     Active Substance: AMIODARONE
     Indication: ATRIAL FIBRILLATION
     Dosage: 600 MG, LOADING DOSE
     Route: 042
     Dates: start: 20200503, end: 20200503
  3. AMIODARONE [Interacting]
     Active Substance: AMIODARONE
     Indication: COVID-19
     Dosage: 900 MG, DAILY
     Dates: start: 20200503, end: 20200504
  4. ZITROMAX [Suspect]
     Active Substance: AZITHROMYCIN
     Indication: PNEUMONIA
     Dosage: 500 MG, 1X/DAY
     Route: 048
     Dates: start: 20200502, end: 20200505
  5. DOMPERIDONE [Interacting]
     Active Substance: DOMPERIDONE
     Indication: COVID-19
     Dosage: 10 MG, 3X/DAY
     Dates: start: 20200503, end: 20200506
  6. AMIODARONE [Interacting]
     Active Substance: AMIODARONE
     Dosage: 200 MG, 2X/DAY
     Route: 048
     Dates: start: 20200505, end: 20200506

REACTIONS (2)
  - Drug interaction [Unknown]
  - Electrocardiogram QT prolonged [Recovered/Resolved]

NARRATIVE: CASE EVENT DATE: 20200506
